FAERS Safety Report 24734711 (Version 1)
Quarter: 2024Q4

REPORT INFORMATION
  Report Type: Other
  Country: IN (occurrence: IN)
  Receive Date: 20241214
  Receipt Date: 20241214
  Transmission Date: 20250114
  Serious: Yes (Hospitalization)
  Sender: Kanchan Healthcare
  Company Number: IN-Kanchan Healthcare INC-2167101

PATIENT
  Age: 30 Year
  Sex: Female

DRUGS (4)
  1. DEXAMETHASONE [Suspect]
     Active Substance: DEXAMETHASONE
     Indication: Product used for unknown indication
  2. OLANZAPINE [Concomitant]
     Active Substance: OLANZAPINE
  3. Cobalamin (Vitamin B12) [Concomitant]
  4. ESCITALOPRAM [Concomitant]
     Active Substance: ESCITALOPRAM OXALATE

REACTIONS (1)
  - Lactation insufficiency [Recovered/Resolved]
